FAERS Safety Report 8957614 (Version 2)
Quarter: 2012Q4

REPORT INFORMATION
  Report Type: 
  Country: KR (occurrence: KR)
  Receive Date: 20121210
  Receipt Date: 20121221
  Transmission Date: 20130627
  Serious: Yes (Hospitalization)
  Sender: FDA-Public Use
  Company Number: KR-PFIZER INC-2012304237

PATIENT
  Age: 54 Year
  Sex: Male
  Weight: 69 kg

DRUGS (16)
  1. BLINDED AXITINIB [Suspect]
     Indication: CARCINOMA HEPATOCELLULAR
     Dosage: 5 mg, 2x/day
     Route: 048
     Dates: start: 20120410, end: 20121120
  2. BLINDED AXITINIB [Suspect]
     Indication: CARCINOMA HEPATOCELLULAR
     Dosage: 5 mg, 2x/day
     Route: 048
     Dates: start: 20120410, end: 20121120
  3. BLINDED NO SUBJECT DRUG [Suspect]
     Indication: CARCINOMA HEPATOCELLULAR
     Dosage: 5 mg, 2x/day
     Route: 048
     Dates: start: 20120410, end: 20121120
  4. BLINDED PLACEBO [Suspect]
     Indication: CARCINOMA HEPATOCELLULAR
     Dosage: 5 mg, 2x/day
     Route: 048
     Dates: start: 20120410, end: 20121120
  5. BLINDED PLACEBO [Suspect]
     Indication: CARCINOMA HEPATOCELLULAR
     Dosage: 5 mg, 2x/day
     Route: 048
     Dates: start: 20120410, end: 20121120
  6. DOXORUBICIN [Suspect]
     Indication: CARCINOMA HEPATOCELLULAR
     Dosage: 100 mg, 1x/day
     Route: 042
     Dates: start: 20121120, end: 20121120
  7. VITAMIN B COMPLEX [Concomitant]
     Indication: VITAMIN SUPPLEMENTATION
     Dosage: 1 tablet, 1x/day
     Route: 048
     Dates: start: 20110812
  8. DEXTROSE [Concomitant]
     Indication: NUTRITIONAL SUPPLEMENT
     Dosage: 200 ml, 1x/day
     Route: 042
     Dates: start: 20121120, end: 20121120
  9. ENTECAVIR [Concomitant]
     Indication: VIRAL HEPATITIS B
     Dosage: 0.5 mg, 1x/day
     Route: 048
     Dates: start: 20110810
  10. FILGRASTIM [Concomitant]
     Indication: PROPHYLACTIC
     Dosage: 75 mg, 1x/day
     Route: 042
     Dates: start: 20121127, end: 20121127
  11. GRANISETRON [Concomitant]
     Indication: VOMITING PROPHYLAXIS
     Dosage: 1 mg, 1x/day
     Route: 042
     Dates: start: 20121120, end: 20121120
  12. METOCLOPRAMIDE [Concomitant]
     Indication: HEARTBURN
     Dosage: 5 mg, 3x/day
     Route: 048
     Dates: start: 20120925
  13. PHAZYME [Concomitant]
     Indication: HEARTBURN
     Dosage: 1 tablet, 3x/day
     Route: 048
     Dates: start: 20120925
  14. RABEPRAZOLE [Concomitant]
     Indication: HEARTBURN
     Dosage: 10 mg, 1x/day
     Route: 048
     Dates: start: 20120925
  15. SILYMARIN [Concomitant]
     Indication: PREVENTION
     Dosage: 140 mg, 2x/day
     Route: 048
     Dates: start: 20110812
  16. URSA [Concomitant]
     Indication: PREVENTION
     Dosage: 20 mg, 3x/day
     Route: 048
     Dates: start: 20110812

REACTIONS (3)
  - Febrile neutropenia [Recovered/Resolved]
  - Epistaxis [Recovered/Resolved]
  - Otitis media [Recovered/Resolved]
